FAERS Safety Report 9256343 (Version 1)
Quarter: 2013Q2

REPORT INFORMATION
  Report Type: Spontaneous
  Country: US (occurrence: US)
  Receive Date: 20130425
  Receipt Date: 20130425
  Transmission Date: 20140414
  Serious: Yes (Hospitalization)
  Sender: FDA-Public Use
  Company Number: US-MYLANLABS-2013S1008283

PATIENT
  Age: 52 Year
  Sex: Male

DRUGS (4)
  1. CLONIDINE [Suspect]
     Indication: HYPERTENSION
     Route: 065
  2. HYDRALAZINE [Suspect]
     Indication: HYPERTENSION
     Route: 065
  3. LACTULOSE [Suspect]
     Indication: CONSTIPATION
     Dosage: AS NEEDED
     Route: 065
  4. AMLODIPINE [Concomitant]
     Indication: HYPERTENSION
     Route: 065

REACTIONS (1)
  - Gastrointestinal tract mucosal pigmentation [Recovered/Resolved]
